FAERS Safety Report 7295250-3 (Version None)
Quarter: 2011Q1

REPORT INFORMATION
  Report Type: 
  Country: None (occurrence: None)
  Receive Date: 20110216
  Receipt Date: 20110209
  Transmission Date: 20110831
  Serious: Yes (Other)
  Sender: FDA-Public Use
  Company Number: US-JNJFOC-20110203326

PATIENT
  Sex: Female
  Weight: 87.09 kg

DRUGS (7)
  1. OMEGA-3 FATTY ACIDS [Concomitant]
     Indication: RHEUMATOID ARTHRITIS
  2. FOLIC ACID [Concomitant]
     Indication: RHEUMATOID ARTHRITIS
  3. PULMICORT [Concomitant]
     Indication: LOWER RESPIRATORY TRACT INFLAMMATION
     Dosage: 2-4 PUFFS TWICE DAILY
     Route: 065
  4. METHOTREXATE [Concomitant]
     Indication: RHEUMATOID ARTHRITIS
     Dosage: 17.5 MG/2.5 MG ONCE WEEKLY
     Route: 048
  5. AMOXICILLIN [Concomitant]
     Indication: INFECTION PROPHYLAXIS
     Dosage: FOR 7 DAYS
     Route: 048
  6. NIASPAN [Concomitant]
     Dosage: 2000MG/500MG ONCE A DAY.
     Route: 048
  7. REMICADE [Suspect]
     Indication: RHEUMATOID ARTHRITIS
     Route: 042

REACTIONS (2)
  - CANDIDIASIS [None]
  - WEIGHT DECREASED [None]
